APPROVED DRUG PRODUCT: BENDAMUSTINE HYDROCHLORIDE
Active Ingredient: BENDAMUSTINE HYDROCHLORIDE
Strength: 25MG/ML (25MG/ML)
Dosage Form/Route: SOLUTION;INTRAVENOUS
Application: N211530 | Product #001
Applicant: HOSPIRA INC
Approved: Dec 15, 2022 | RLD: Yes | RS: No | Type: DISCN